FAERS Safety Report 12829459 (Version 1)
Quarter: 2016Q4

REPORT INFORMATION
  Report Type: Spontaneous
  Country: US (occurrence: US)
  Receive Date: 20161007
  Receipt Date: 20161007
  Transmission Date: 20170207
  Serious: No
  Sender: FDA-Public Use
  Company Number: US-SA-2016SA085415

PATIENT
  Age: 55 Year
  Sex: Female

DRUGS (6)
  1. AUBAGIO [Suspect]
     Active Substance: TERIFLUNOMIDE
     Indication: MULTIPLE SCLEROSIS
     Route: 048
  2. CALCIUM [Concomitant]
     Active Substance: CALCIUM
  3. DETROL LA [Concomitant]
     Active Substance: TOLTERODINE TARTRATE
  4. BACLOFEN. [Concomitant]
     Active Substance: BACLOFEN
  5. MIRAPEX [Concomitant]
     Active Substance: PRAMIPEXOLE DIHYDROCHLORIDE
  6. AMPYRA [Concomitant]
     Active Substance: DALFAMPRIDINE
     Dosage: 10 MG

REACTIONS (3)
  - Muscular weakness [Unknown]
  - Drug dose omission [Unknown]
  - Fall [Unknown]
